FAERS Safety Report 19820645 (Version 3)
Quarter: 2021Q4

REPORT INFORMATION
  Report Type: Spontaneous
  Country: GB (occurrence: GB)
  Receive Date: 20210913
  Receipt Date: 20211102
  Transmission Date: 20220303
  Serious: Yes (Hospitalization, Other)
  Sender: FDA-Public Use
  Company Number: GB-ROCHE-1888630

PATIENT
  Age: 75 Year
  Sex: Female

DRUGS (57)
  1. DOCETAXEL [Suspect]
     Active Substance: DOCETAXEL
     Indication: Breast cancer metastatic
     Dosage: 170 MG, Q3W
     Route: 042
     Dates: start: 20150721, end: 20150807
  2. DOCETAXEL [Suspect]
     Active Substance: DOCETAXEL
     Dosage: 170 MG, Q3W
     Route: 042
  3. DOCETAXEL [Suspect]
     Active Substance: DOCETAXEL
     Dosage: 170 MG, Q3W
     Route: 042
     Dates: start: 20150807, end: 20150807
  4. ANASTROZOLE [Suspect]
     Active Substance: ANASTROZOLE
     Indication: Breast cancer metastatic
     Dosage: 1 MG, QD
     Route: 048
     Dates: start: 20160115
  5. ANASTROZOLE [Suspect]
     Active Substance: ANASTROZOLE
     Dosage: 1 MG, QD
     Route: 065
  6. ANASTROZOLE [Suspect]
     Active Substance: ANASTROZOLE
     Dosage: 178.041 MG, QD
     Route: 048
  7. TRASTUZUMAB [Suspect]
     Active Substance: TRASTUZUMAB
     Indication: Breast cancer metastatic
     Dosage: 600 MG (ONCE EVERY TWICE IN WEEKS)
     Route: 058
     Dates: start: 20150721, end: 20151126
  8. TRASTUZUMAB [Suspect]
     Active Substance: TRASTUZUMAB
     Dosage: 1200 MG, Q3W
     Route: 058
     Dates: start: 20150721
  9. TRASTUZUMAB [Suspect]
     Active Substance: TRASTUZUMAB
     Dosage: 1200 MG, Q3W
     Route: 058
     Dates: start: 20151126, end: 20151126
  10. TRASTUZUMAB [Suspect]
     Active Substance: TRASTUZUMAB
     Dosage: 600 MG, BID
     Route: 058
  11. TRASTUZUMAB [Suspect]
     Active Substance: TRASTUZUMAB
     Dosage: 600 MG, BID
     Route: 058
  12. HYALURONIDASE [Suspect]
     Active Substance: HYALURONIDASE
     Dosage: 600 MG, Q3W
     Route: 058
     Dates: start: 20150721, end: 20151126
  13. PERTUZUMAB [Suspect]
     Active Substance: PERTUZUMAB
     Indication: Breast cancer metastatic
     Dosage: 420 MG (ONCE EVERY 3 WEEKS)
     Route: 042
     Dates: start: 20150721, end: 20151126
  14. PERTUZUMAB [Suspect]
     Active Substance: PERTUZUMAB
     Dosage: 420 MG, Q3W
     Route: 042
     Dates: start: 20151126
  15. PREDNISOLONE [Concomitant]
     Active Substance: PREDNISOLONE
     Dosage: 40 MG, QD
     Route: 048
     Dates: start: 20160601, end: 20160606
  16. FUROSEMIDE [Concomitant]
     Active Substance: FUROSEMIDE
     Dosage: UNK
  17. METOCLOPRAMIDE [Concomitant]
     Active Substance: METOCLOPRAMIDE
     Dosage: UNK
  18. DEXAMETHASONE [Concomitant]
     Active Substance: DEXAMETHASONE
     Indication: Prophylaxis
     Dosage: 8 MG, BID (FOR 3 DAYS)
     Route: 048
     Dates: start: 20150721, end: 20150722
  19. FENTANYL [Concomitant]
     Active Substance: FENTANYL
     Dosage: 200 UG
     Route: 042
     Dates: start: 20160531, end: 20160601
  20. CHLORPHENIRAMINE MALEATE [Concomitant]
     Active Substance: CHLORPHENIRAMINE MALEATE
     Indication: Premedication
     Dosage: 10 MG, Q3W
     Route: 042
     Dates: start: 20150721, end: 20151126
  21. CANDESARTAN [Concomitant]
     Active Substance: CANDESARTAN
     Indication: Product used for unknown indication
     Dosage: 32 MG, QD
     Route: 048
     Dates: start: 2013
  22. ALENDRONIC ACID [Concomitant]
     Active Substance: ALENDRONIC ACID
     Dosage: 70 MG, QW
     Route: 048
     Dates: start: 20180205
  23. ATORVASTATIN [Concomitant]
     Active Substance: ATORVASTATIN
     Indication: Prophylaxis
     Dosage: 20 MG, QD
     Route: 048
     Dates: start: 20161130
  24. ATORVASTATIN [Concomitant]
     Active Substance: ATORVASTATIN
     Dosage: 20 MG, QD
     Route: 048
     Dates: start: 20161130
  25. ATORVASTATIN [Concomitant]
     Active Substance: ATORVASTATIN
     Dosage: 20 MG, QD
     Route: 048
  26. BISOPROLOL [Concomitant]
     Active Substance: BISOPROLOL
     Dosage: 1.25 MG, QD
     Route: 048
     Dates: start: 20160121
  27. BISOPROLOL [Concomitant]
     Active Substance: BISOPROLOL
     Dosage: 2.5 MG, BID
     Route: 048
     Dates: start: 20160415
  28. BISOPROLOL [Concomitant]
     Active Substance: BISOPROLOL
     Dosage: 2.5 MG, QD
     Route: 048
     Dates: start: 20160415
  29. CLOPIDOGREL [Concomitant]
     Active Substance: CLOPIDOGREL BISULFATE
     Indication: Prophylaxis
     Dosage: 75 MG
     Route: 048
  30. CLOPIDOGREL [Concomitant]
     Active Substance: CLOPIDOGREL BISULFATE
     Dosage: 75 MG, QD
     Route: 048
     Dates: start: 20161130
  31. DALTEPARIN [Concomitant]
     Active Substance: DALTEPARIN
     Dosage: 1000 IU
     Route: 058
     Dates: start: 20151206, end: 20151206
  32. DIGOXIN [Concomitant]
     Active Substance: DIGOXIN
     Indication: Product used for unknown indication
     Dosage: 62.5 MG, QD
     Route: 048
     Dates: start: 20160121
  33. DIGOXIN [Concomitant]
     Active Substance: DIGOXIN
     Dosage: 62.5 UG
     Route: 048
     Dates: start: 20160121
  34. FELODIPINE [Concomitant]
     Active Substance: FELODIPINE
     Indication: Product used for unknown indication
     Dosage: 2.5 MG, QD
     Route: 048
     Dates: start: 20161030
  35. FUROSEMIDE [Concomitant]
     Active Substance: FUROSEMIDE
     Dosage: 50 MG, BID
     Route: 042
     Dates: start: 20151206, end: 20151207
  36. FUROSEMIDE [Concomitant]
     Active Substance: FUROSEMIDE
     Dosage: 40 MG, QD
     Dates: start: 20151211
  37. INDAPAMIDE [Concomitant]
     Active Substance: INDAPAMIDE
     Indication: Prophylaxis
     Dosage: 2.5 MG, QD
     Route: 048
  38. LIDOCAINE [Concomitant]
     Active Substance: LIDOCAINE
     Indication: Pain
     Dosage: 1 DF, PRN
     Route: 062
     Dates: start: 20190405
  39. LISINOPRIL [Concomitant]
     Active Substance: LISINOPRIL
     Dosage: 5 MG, QD
     Dates: start: 20151218, end: 20160415
  40. ONDANSETRON [Concomitant]
     Active Substance: ONDANSETRON
     Indication: Prophylaxis
     Dosage: 8 MG, BID (TWICE DAILY FOR 3 DAYS POST CHEMOTHERAPY)
     Route: 048
     Dates: start: 20150721, end: 20150722
  41. ACETAMINOPHEN [Concomitant]
     Active Substance: ACETAMINOPHEN
     Indication: Premedication
     Dosage: 500 MG, QD
     Route: 048
  42. ACETAMINOPHEN [Concomitant]
     Active Substance: ACETAMINOPHEN
     Dosage: 1 G, Q3W
     Route: 048
     Dates: start: 20160531
  43. ACETAMINOPHEN [Concomitant]
     Active Substance: ACETAMINOPHEN
     Dosage: 1 G, Q3W
     Route: 048
     Dates: start: 20150721
  44. RAMIPRIL [Concomitant]
     Active Substance: RAMIPRIL
     Indication: Prophylaxis
     Dosage: 2.5 MG, BID
     Route: 048
     Dates: start: 20160415, end: 201605
  45. RAMIPRIL [Concomitant]
     Active Substance: RAMIPRIL
     Dosage: 5 MG, QD
     Route: 048
     Dates: start: 2016
  46. RAMIPRIL [Concomitant]
     Active Substance: RAMIPRIL
     Dosage: 3.75 MG, QD
     Route: 048
     Dates: start: 201605
  47. RAMIPRIL [Concomitant]
     Active Substance: RAMIPRIL
     Dosage: 7.5 MG, QD
     Route: 048
     Dates: start: 201605
  48. RAMIPRIL [Concomitant]
     Active Substance: RAMIPRIL
     Dosage: 2 MG, QD
     Route: 048
     Dates: start: 20160415, end: 201605
  49. RAMIPRIL [Concomitant]
     Active Substance: RAMIPRIL
     Dosage: 1 DF, QD
     Route: 048
     Dates: start: 20160415, end: 201605
  50. RAMIPRIL [Concomitant]
     Active Substance: RAMIPRIL
     Dosage: 10 MG, BID
     Route: 048
     Dates: start: 2016
  51. RAMIPRIL [Concomitant]
     Active Substance: RAMIPRIL
     Dosage: 7.5 MG, QD
     Route: 048
     Dates: start: 201605, end: 201606
  52. TRIMETHOPRIM [Concomitant]
     Active Substance: TRIMETHOPRIM
     Indication: Urinary tract infection
     Dosage: 200 MG, QD
     Route: 065
     Dates: start: 20181019, end: 20181023
  53. CALCIUM CARBONATE [Concomitant]
     Active Substance: CALCIUM CARBONATE
     Dosage: 500 MG, QD
     Route: 048
     Dates: start: 20180205
  54. COCODAMOL [Concomitant]
     Active Substance: ACETAMINOPHEN\CODEINE PHOSPHATE
     Indication: Product used for unknown indication
     Dosage: 500 MG, PRN
     Route: 048
  55. COCODAMOL [Concomitant]
     Active Substance: ACETAMINOPHEN\CODEINE PHOSPHATE
     Dosage: 500 MG, PRN
     Route: 048
     Dates: start: 20150720
  56. IOPIDINE [Concomitant]
     Active Substance: APRACLONIDINE HYDROCHLORIDE
     Indication: Product used for unknown indication
     Dosage: 1 GTT DROPS
     Route: 047
     Dates: start: 20160601, end: 20160629
  57. ORAMORPH SR SUSTAINED RELEASE [Concomitant]
     Active Substance: MORPHINE SULFATE
     Indication: Pain
     Dosage: 5 MG, PRN
     Route: 048
     Dates: start: 20190405

REACTIONS (22)
  - Haemorrhoids [Recovered/Resolved with Sequelae]
  - Haemorrhoids [Recovered/Resolved with Sequelae]
  - Presyncope [Recovered/Resolved]
  - Retinal detachment [Recovered/Resolved with Sequelae]
  - Ejection fraction decreased [Recovered/Resolved]
  - Osteopenia [Not Recovered/Not Resolved]
  - Rectal haemorrhage [Recovered/Resolved]
  - Rectal haemorrhage [Recovered/Resolved]
  - Diarrhoea [Recovered/Resolved]
  - Headache [Not Recovered/Not Resolved]
  - Condition aggravated [Recovered/Resolved]
  - Weight decreased [Recovered/Resolved]
  - Pleural effusion [Recovered/Resolved]
  - Alopecia [Recovered/Resolved]
  - Back pain [Recovered/Resolved]
  - Back pain [Recovered/Resolved]
  - Dyspnoea [Recovered/Resolved]
  - Dizziness [Recovered/Resolved]
  - Constipation [Recovered/Resolved]
  - Fatigue [Not Recovered/Not Resolved]
  - Nausea [Recovered/Resolved]
  - Diarrhoea [Recovered/Resolved]

NARRATIVE: CASE EVENT DATE: 20150721
